FAERS Safety Report 21473458 (Version 1)
Quarter: 2022Q4

REPORT INFORMATION
  Report Type: Spontaneous
  Country: US (occurrence: None)
  Receive Date: 20221018
  Receipt Date: 20221018
  Transmission Date: 20230112
  Serious: Yes (Other)
  Sender: FDA-Public Use
  Company Number: None

PATIENT
  Age: 63 Year
  Sex: Female
  Weight: 67.5 kg

DRUGS (9)
  1. ROCKLATAN [Suspect]
     Active Substance: LATANOPROST\NETARSUDIL MESYLATE
     Indication: Glaucoma
     Route: 047
     Dates: start: 20220526, end: 20221017
  2. symbrinza [Concomitant]
  3. TIMOLOL [Concomitant]
     Active Substance: TIMOLOL
  4. lantanaprost [Concomitant]
  5. Bone growth stimulator [Concomitant]
  6. CALCIUM [Concomitant]
     Active Substance: CALCIUM
  7. ZINC [Concomitant]
     Active Substance: ZINC
  8. lions mane [Concomitant]
  9. VITAMIN D [Concomitant]
     Active Substance: VITAMIN D NOS

REACTIONS (2)
  - Visual acuity reduced [None]
  - Therapy cessation [None]

NARRATIVE: CASE EVENT DATE: 20220613
